FAERS Safety Report 11378838 (Version 1)
Quarter: 2015Q3

REPORT INFORMATION
  Report Type: Spontaneous
  Country: US (occurrence: US)
  Receive Date: 20150811
  Receipt Date: 20150811
  Transmission Date: 20151125
  Serious: No
  Sender: FDA-Public Use
  Company Number: US-ELI_LILLY_AND_COMPANY-US200906000424

PATIENT
  Age: 39 Year
  Sex: Female

DRUGS (15)
  1. CALCIUM [Concomitant]
     Active Substance: CALCIUM
  2. VITAMIN D3 [Concomitant]
     Active Substance: CHOLECALCIFEROL
  3. HUMULIN R [Suspect]
     Active Substance: INSULIN HUMAN
     Dosage: UNK, UNK
     Dates: start: 200807
  4. ASA [Concomitant]
     Active Substance: ASPIRIN
  5. ADVAIR HFA [Concomitant]
     Active Substance: FLUTICASONE PROPIONATE\SALMETEROL XINAFOATE
  6. TRICOR [Concomitant]
     Active Substance: FENOFIBRATE
  7. LEVSIN [Concomitant]
     Active Substance: HYOSCYAMINE SULFATE
  8. CARDIZEM [Concomitant]
     Active Substance: DILTIAZEM HYDROCHLORIDE
  9. LISINOPRIL. [Concomitant]
     Active Substance: LISINOPRIL
  10. LOPRESSOR [Concomitant]
     Active Substance: METOPROLOL TARTRATE
  11. PROTONIX [Concomitant]
     Active Substance: PANTOPRAZOLE SODIUM
  12. CORTEF [Concomitant]
     Active Substance: HYDROCORTISONE
  13. VYTORIN [Concomitant]
     Active Substance: EZETIMIBE\SIMVASTATIN
  14. NITROBID [Concomitant]
  15. AVINZA [Concomitant]
     Active Substance: MORPHINE SULFATE

REACTIONS (4)
  - Poor quality drug administered [Recovered/Resolved]
  - Blood glucose increased [Unknown]
  - Glycosylated haemoglobin increased [Unknown]
  - Intentional product use issue [Unknown]

NARRATIVE: CASE EVENT DATE: 2008
